FAERS Safety Report 23041983 (Version 1)
Quarter: 2023Q4

REPORT INFORMATION
  Report Type: Spontaneous
  Country: US (occurrence: US)
  Receive Date: 20231007
  Receipt Date: 20231007
  Transmission Date: 20240109
  Serious: No
  Sender: FDA-Public Use
  Company Number: US-AMGEN-USASP2023169118

PATIENT
  Sex: Female

DRUGS (3)
  1. LUMAKRAS [Suspect]
     Active Substance: SOTORASIB
     Indication: Non-small cell lung cancer
     Dosage: 480 MILLIGRAM, QD (120 MG STRENGTH)
     Route: 048
     Dates: start: 2022
  2. LUMAKRAS [Suspect]
     Active Substance: SOTORASIB
     Dosage: 1280 MILLIGRAM, QD (320 MG STRENGTH)
     Route: 048
  3. LUMAKRAS [Suspect]
     Active Substance: SOTORASIB
     Dosage: 480 MILLIGRAM, QD (120 MG STRENGTH)
     Route: 048

REACTIONS (2)
  - Product dispensing error [Recovered/Resolved]
  - Off label use [Unknown]

NARRATIVE: CASE EVENT DATE: 20220101
